FAERS Safety Report 4885031-X (Version None)
Quarter: 2006Q1

REPORT INFORMATION
  Report Type: 
  Country: None (occurrence: None)
  Receive Date: 20060117
  Receipt Date: 20051128
  Transmission Date: 20060701
  Serious: Yes (Hospitalization)
  Sender: FDA-Public Use
  Company Number: CLOF-10169

PATIENT
  Age: 74 Year
  Sex: Male

DRUGS (3)
  1. CLOFARABINE [Suspect]
     Indication: NON-HODGKIN'S LYMPHOMA
     Dosage: 40 MG/M2 QD X 5; IV
     Route: 042
     Dates: start: 20051031, end: 20051104
  2. CLOFARABINE [Suspect]
     Indication: NON-HODGKIN'S LYMPHOMA
     Dosage: 30 MG/M2; IV
     Route: 042
     Dates: start: 20051129, end: 20051129
  3. VINCRISTINE [Concomitant]

REACTIONS (13)
  - ANAEMIA [None]
  - AUTONOMIC NEUROPATHY [None]
  - BLOOD ALBUMIN DECREASED [None]
  - BLOOD CALCIUM DECREASED [None]
  - BLOOD CREATININE DECREASED [None]
  - BLOOD GLUCOSE INCREASED [None]
  - BLOOD LACTATE DEHYDROGENASE INCREASED [None]
  - BLOOD POTASSIUM DECREASED [None]
  - BONE MARROW FAILURE [None]
  - DEHYDRATION [None]
  - DRUG TOXICITY [None]
  - ORTHOSTATIC HYPOTENSION [None]
  - PROTEIN TOTAL DECREASED [None]
